FAERS Safety Report 12990975 (Version 1)
Quarter: 2016Q4

REPORT INFORMATION
  Report Type: Spontaneous
  Country: US (occurrence: US)
  Receive Date: 20161130
  Receipt Date: 20161130
  Transmission Date: 20170207
  Serious: Yes (Disabling)
  Sender: FDA-Public Use
  Company Number: None

PATIENT
  Age: 68 Year
  Sex: Female
  Weight: 72.9 kg

DRUGS (12)
  1. MOEXPERIL [Concomitant]
  2. METROPROLOL [Concomitant]
     Active Substance: METOPROLOL
  3. AMLODIPINE [Concomitant]
     Active Substance: AMLODIPINE BESYLATE
  4. CALCIUM/MAGNESIUM [Concomitant]
  5. ELIQUIS [Concomitant]
     Active Substance: APIXABAN
  6. VITAMIN D [Concomitant]
     Active Substance: CHOLECALCIFEROL
  7. ENTRESTO [Suspect]
     Active Substance: SACUBITRIL\VALSARTAN
     Indication: CARDIAC FAILURE
     Dosage: QUANTITY:1 TABLET(S); TWICE A DAY; ORAL?
     Route: 048
     Dates: start: 20161003, end: 20161028
  8. POTASSIUM [Concomitant]
     Active Substance: POTASSIUM
  9. LEVOTHYROXINE. [Concomitant]
     Active Substance: LEVOTHYROXINE
  10. VITAMIN C [Concomitant]
     Active Substance: ASCORBIC ACID
  11. FISH OIL [Concomitant]
     Active Substance: FISH OIL
  12. COENZYME Q10 [Concomitant]
     Active Substance: UBIDECARENONE

REACTIONS (7)
  - Flatulence [None]
  - Eructation [None]
  - Pruritus [None]
  - Hypertension [None]
  - Sleep disorder [None]
  - Paraesthesia [None]
  - Cardiac failure [None]

NARRATIVE: CASE EVENT DATE: 20161003
